FAERS Safety Report 4913859-6 (Version None)
Quarter: 2006Q1

REPORT INFORMATION
  Report Type: 
  Country: None (occurrence: None)
  Receive Date: 20060210
  Receipt Date: 20060127
  Transmission Date: 20060701
  Serious: Yes (Hospitalization, Other)
  Sender: FDA-Public Use
  Company Number: 221475

PATIENT
  Age: 62 Year
  Sex: Female

DRUGS (5)
  1. RAPTIVA [Suspect]
     Indication: PSORIASIS
     Dates: start: 20040101, end: 20060109
  2. RAPTIVA [Suspect]
     Indication: PSORIASIS
     Dates: start: 20060130
  3. PREMPRO [Concomitant]
  4. INHALER (TYPE UNKNOWN) (GENERIC COMPONENT(S) NOT KNOWN) [Concomitant]
  5. UNIPHYL [Concomitant]

REACTIONS (11)
  - ASTHENIA [None]
  - BALANCE DISORDER [None]
  - CEREBRAL ISCHAEMIA [None]
  - FALL [None]
  - FATIGUE [None]
  - HEMIPARESIS [None]
  - HYPOAESTHESIA [None]
  - NUCLEAR MAGNETIC RESONANCE IMAGING BRAIN ABNORMAL [None]
  - OXYGEN SATURATION DECREASED [None]
  - PARAESTHESIA [None]
  - TREATMENT NONCOMPLIANCE [None]
